FAERS Safety Report 9499075 (Version 1)
Quarter: 2013Q3

REPORT INFORMATION
  Report Type: Spontaneous
  Country: DE (occurrence: DE)
  Receive Date: 20130904
  Receipt Date: 20130904
  Transmission Date: 20140515
  Serious: Yes (Congenital Anomaly)
  Sender: FDA-Public Use
  Company Number: DE-WATSON-2013-15463

PATIENT
  Sex: Male

DRUGS (1)
  1. METFORMIN (UNKNOWN) [Suspect]
     Indication: POLYCYSTIC OVARIES
     Dosage: 500 MG, TID
     Route: 064

REACTIONS (5)
  - Hypospadias [Unknown]
  - Atrial septal defect [Unknown]
  - Developmental delay [Unknown]
  - Adactyly [Unknown]
  - Urethral valves [Unknown]
